FAERS Safety Report 10179893 (Version 2)
Quarter: 2014Q2

REPORT INFORMATION
  Report Type: Spontaneous
  Country: IT (occurrence: IT)
  Receive Date: 20140519
  Receipt Date: 20140520
  Transmission Date: 20141212
  Serious: Yes (Life-Threatening, Hospitalization)
  Sender: FDA-Public Use
  Company Number: IT-PFIZER INC-2014134718

PATIENT
  Age: 19 Year
  Sex: Female
  Weight: 65 kg

DRUGS (3)
  1. XANAX [Suspect]
     Dosage: 20 ML, TOTAL
     Route: 048
     Dates: start: 20140408, end: 201405
  2. RISPERDAL [Suspect]
     Dosage: 5 MG, TOTAL
     Route: 048
     Dates: start: 20140408, end: 20140408
  3. DEPAKIN CHRONO [Suspect]
     Dosage: 900 MG, TOTAL
     Route: 048
     Dates: start: 20140408, end: 20140408

REACTIONS (2)
  - Self injurious behaviour [Unknown]
  - Bradyphrenia [Unknown]
